FAERS Safety Report 11600611 (Version 2)
Quarter: 2016Q4

REPORT INFORMATION
  Report Type: Report from Study
  Country: US (occurrence: US)
  Receive Date: 20151006
  Receipt Date: 20161005
  Transmission Date: 20170206
  Serious: Yes (Other)
  Sender: FDA-Public Use
  Company Number: US-AMGEN-USASP2014100672

PATIENT
  Age: 77 Year
  Sex: Female

DRUGS (11)
  1. VITAMINS                           /00067501/ [Concomitant]
     Active Substance: VITAMINS
     Dosage: UNK
  2. DIOVAN [Concomitant]
     Active Substance: VALSARTAN
     Dosage: UNK
  3. HYDROGEN PEROXIDE. [Suspect]
     Active Substance: HYDROGEN PEROXIDE
     Indication: SKIN REACTION
     Route: 065
  4. KENALOG [Concomitant]
     Active Substance: TRIAMCINOLONE ACETONIDE
     Dosage: UNK
  5. GABAPENTIN. [Concomitant]
     Active Substance: GABAPENTIN
     Indication: NEUROPATHY PERIPHERAL
     Dosage: UNK
  6. GABAPENTIN. [Concomitant]
     Active Substance: GABAPENTIN
     Indication: LIMB DISCOMFORT
  7. TRIAMCINOLONE [Suspect]
     Active Substance: TRIAMCINOLONE
     Indication: SKIN REACTION
     Route: 065
  8. MAGNESIUM [Concomitant]
     Active Substance: MAGNESIUM
     Dosage: UNK
  9. DEXAMETHAZONE [Concomitant]
     Active Substance: DEXAMETHASONE
     Indication: MUSCULOSKELETAL DISCOMFORT
     Dosage: UNK
  10. DEXAMETHAZONE [Concomitant]
     Active Substance: DEXAMETHASONE
     Indication: BACK DISORDER
  11. PROLIA [Suspect]
     Active Substance: DENOSUMAB
     Indication: OSTEOPOROSIS POSTMENOPAUSAL
     Dosage: UNK
     Route: 065
     Dates: start: 201406

REACTIONS (15)
  - Blister [Unknown]
  - Muscle spasms [Not Recovered/Not Resolved]
  - Pain in extremity [Not Recovered/Not Resolved]
  - Rash [Unknown]
  - Irritability [Unknown]
  - Muscular weakness [Unknown]
  - Arthralgia [Unknown]
  - Pneumonia [Not Recovered/Not Resolved]
  - Skin reaction [Unknown]
  - Nerve compression [Unknown]
  - Myalgia [Unknown]
  - Asthenia [Unknown]
  - Drug ineffective [Unknown]
  - Groin pain [Not Recovered/Not Resolved]
  - Bronchitis [Recovering/Resolving]

NARRATIVE: CASE EVENT DATE: 201410
